FAERS Safety Report 4417924-1 (Version None)
Quarter: 2004Q3

REPORT INFORMATION
  Report Type: 
  Country: None (occurrence: None)
  Receive Date: 20040803
  Receipt Date: 20040719
  Transmission Date: 20050211
  Serious: Yes (Hospitalization)
  Sender: FDA-Public Use
  Company Number: 2004GB01752

PATIENT
  Age: 71 Year
  Sex: Female

DRUGS (10)
  1. BUDESONIDE [Suspect]
     Indication: CROHN'S DISEASE
     Dosage: 3 MG TID PO
     Route: 048
     Dates: end: 20040701
  2. ASPIRIN [Suspect]
     Indication: MYOCARDIAL INFARCTION
     Dosage: 75 MG QD PO
     Route: 048
     Dates: end: 20040701
  3. ASPIRIN [Suspect]
     Indication: PROPHYLAXIS
     Dosage: 75 MG QD PO
     Route: 048
     Dates: end: 20040701
  4. RANITIDINE [Concomitant]
  5. BENDROFLUAZIDE [Concomitant]
  6. AMLODIPINE [Concomitant]
  7. RAMIPRIL [Concomitant]
  8. ATORVASTATIN [Concomitant]
  9. CO-DODAMOL [Concomitant]
  10. HUMULIN M3 [Concomitant]

REACTIONS (2)
  - GASTRIC ULCER [None]
  - GASTROINTESTINAL HAEMORRHAGE [None]
